FAERS Safety Report 5511750-8 (Version None)
Quarter: 2007Q4

REPORT INFORMATION
  Report Type: 
  Country: None (occurrence: None)
  Receive Date: 20071109
  Receipt Date: 20071030
  Transmission Date: 20080405
  Serious: Yes (Life-Threatening, Disabling, Other)
  Sender: FDA-Public Use
  Company Number: GB-PFIZER INC-2007083791

PATIENT
  Sex: Female
  Weight: 60.3 kg

DRUGS (3)
  1. CHAMPIX [Suspect]
     Indication: SMOKING CESSATION THERAPY
     Route: 048
     Dates: start: 20070910, end: 20070927
  2. DIHYDROCODEINE BITARTRATE INJ [Concomitant]
     Route: 048
  3. LEVOTHYROXINE SODIUM [Concomitant]
     Route: 048

REACTIONS (2)
  - HYPOAESTHESIA [None]
  - SENSATION OF HEAVINESS [None]
